FAERS Safety Report 8446256-X (Version None)
Quarter: 2012Q2

REPORT INFORMATION
  Report Type: 
  Country: None (occurrence: None)
  Receive Date: 20120618
  Receipt Date: 20120605
  Transmission Date: 20120825
  Serious: Yes (Hospitalization, Other)
  Sender: FDA-Public Use
  Company Number: JP-PFIZER INC-2012104070

PATIENT
  Age: 70 Year
  Sex: Female

DRUGS (13)
  1. RHEUMATREX [Suspect]
     Dosage: 10 MG DAILY
     Route: 048
     Dates: start: 20030101
  2. DEPAS [Concomitant]
  3. ALFAROL [Concomitant]
  4. VFEND [Suspect]
  5. AVELOX [Concomitant]
  6. ASPENON [Concomitant]
  7. LEVOTHYROXINE SODIUM [Concomitant]
  8. OPALMON [Suspect]
  9. RABEPRAZOLE SODIUM [Concomitant]
  10. SOLU-MEDROL [Concomitant]
  11. LORCAM [Concomitant]
  12. TOLEDOMIN [Concomitant]
  13. ALPRAZOLAM [Concomitant]

REACTIONS (3)
  - INTERSTITIAL LUNG DISEASE [None]
  - BRONCHOPULMONARY ASPERGILLOSIS [None]
  - BLEPHAROSPASM [None]
